FAERS Safety Report 8531065-3 (Version None)
Quarter: 2012Q3

REPORT INFORMATION
  Report Type: 
  Country: None (occurrence: None)
  Receive Date: 20120723
  Receipt Date: 20120719
  Transmission Date: 20120928
  Serious: Yes (Hospitalization)
  Sender: FDA-Public Use
  Company Number: US-TEVA-349433USA

PATIENT
  Age: 63 Year
  Sex: Female

DRUGS (1)
  1. COPAXONE [Suspect]
     Indication: MULTIPLE SCLEROSIS

REACTIONS (4)
  - SYNCOPE [None]
  - TACHYCARDIA [None]
  - HYPERHIDROSIS [None]
  - HYPOTENSION [None]
